FAERS Safety Report 4614840-7 (Version None)
Quarter: 2005Q1

REPORT INFORMATION
  Report Type: 
  Country: None (occurrence: None)
  Receive Date: 20050318
  Receipt Date: 20050318
  Transmission Date: 20050727
  Serious: Yes (Other)
  Sender: FDA-Public Use
  Company Number: None

PATIENT
  Age: 57 Year
  Sex: Female

DRUGS (1)
  1. QUETIAPINE       ASTRA/ZENECA [Suspect]
     Indication: SCHIZOPHRENIA

REACTIONS (1)
  - WHITE BLOOD CELL COUNT DECREASED [None]
